FAERS Safety Report 14487262 (Version 1)
Quarter: 2018Q1

REPORT INFORMATION
  Report Type: Spontaneous
  Country: US (occurrence: US)
  Receive Date: 20180204
  Receipt Date: 20180204
  Transmission Date: 20180509
  Serious: Yes (Disabling)
  Sender: FDA-Public Use
  Company Number: None

PATIENT
  Age: 46 Year
  Sex: Female
  Weight: 74.25 kg

DRUGS (9)
  1. CELEBREX [Concomitant]
     Active Substance: CELECOXIB
  2. CIPROFLOXACIN. [Suspect]
     Active Substance: CIPROFLOXACIN
     Indication: URINARY TRACT INFECTION
     Route: 048
  3. PROGESTERONE. [Concomitant]
     Active Substance: PROGESTERONE
  4. TESTOSTERONE CREAM [Concomitant]
     Active Substance: TESTOSTERONE
  5. NERVE ABATEMENT CREAM [Concomitant]
  6. SYNTHROID [Concomitant]
     Active Substance: LEVOTHYROXINE SODIUM
  7. CYTOMEL [Concomitant]
     Active Substance: LIOTHYRONINE SODIUM
  8. ESTROGEN [Concomitant]
     Active Substance: ESTROGENS
  9. GABAPENTIN. [Concomitant]
     Active Substance: GABAPENTIN

REACTIONS (2)
  - Neuropathy peripheral [None]
  - Tendonitis [None]

NARRATIVE: CASE EVENT DATE: 20100727
